FAERS Safety Report 7791344-4 (Version None)
Quarter: 2011Q4

REPORT INFORMATION
  Report Type: 
  Country: None (occurrence: None)
  Receive Date: 20111003
  Receipt Date: 20110923
  Transmission Date: 20120403
  Serious: No
  Sender: FDA-Public Use
  Company Number: US-BIOGENIDEC-2011BI036613

PATIENT
  Sex: Female

DRUGS (2)
  1. AVONEX [Suspect]
     Indication: MULTIPLE SCLEROSIS
     Route: 030
     Dates: start: 19990101, end: 20040101
  2. AVONEX [Suspect]
     Route: 030
     Dates: start: 20040101

REACTIONS (5)
  - ARTHRITIS [None]
  - SENSATION OF HEAVINESS [None]
  - CONTUSION [None]
  - FALL [None]
  - MUSCLE SPASMS [None]
